FAERS Safety Report 5000139-6 (Version None)
Quarter: 2006Q2

REPORT INFORMATION
  Report Type: 
  Country: None (occurrence: None)
  Receive Date: 20060509
  Receipt Date: 20050218
  Transmission Date: 20061013
  Serious: Yes (Death)
  Sender: FDA-Public Use
  Company Number: 2005034266

PATIENT
  Age: 25 Year
  Sex: Female

DRUGS (6)
  1. DEPO-PROVERA [Suspect]
     Indication: ILL-DEFINED DISORDER
     Dosage: SEE IMAGE
     Route: 030
     Dates: start: 20010101, end: 20010101
  2. DEPO-PROVERA [Suspect]
     Indication: ILL-DEFINED DISORDER
     Dosage: SEE IMAGE
     Route: 030
     Dates: start: 20050101, end: 20050101
  3. ACETAMINOPHEN [Concomitant]
  4. CHLORPROMAZINE [Concomitant]
  5. ZUCLOPENTHIXOL              (ZUCLOPENTHIXOL) [Concomitant]
  6. DISIPAL [Concomitant]

REACTIONS (1)
  - PULMONARY EMBOLISM [None]
